FAERS Safety Report 4436878-5 (Version None)
Quarter: 2004Q3

REPORT INFORMATION
  Report Type: 
  Country: None (occurrence: None)
  Receive Date: 20040830
  Receipt Date: 20040819
  Transmission Date: 20050211
  Serious: Yes (Other)
  Sender: FDA-Public Use
  Company Number: PHEH2004US09016

PATIENT
  Age: 89 Year
  Sex: Female

DRUGS (1)
  1. LOTREL [Suspect]
     Indication: HYPERTENSION
     Dosage: 1 CAPSULE/QD
     Route: 048

REACTIONS (5)
  - ANXIETY [None]
  - HALLUCINATION, AUDITORY [None]
  - INSOMNIA [None]
  - PRURITUS [None]
  - RASH GENERALISED [None]
